FAERS Safety Report 5923948-5 (Version None)
Quarter: 2008Q4

REPORT INFORMATION
  Report Type: 
  Country: None (occurrence: None)
  Receive Date: 20081020
  Receipt Date: 20080926
  Transmission Date: 20090506
  Serious: No
  Sender: FDA-Public Use
  Company Number: US-BAYER-200813917BCC

PATIENT
  Age: 81 Year
  Sex: Male
  Weight: 91 kg

DRUGS (4)
  1. ALEVE (CAPLET) [Suspect]
     Indication: BACK PAIN
     Dosage: TOTAL DAILY DOSE: 440 MG  UNIT DOSE: 220 MG
     Route: 048
     Dates: start: 20080925
  2. NORVASC [Concomitant]
  3. ISOSORBIDE [Concomitant]
  4. LIPITOR [Concomitant]

REACTIONS (1)
  - DIZZINESS [None]
